FAERS Safety Report 8811842 (Version 1)
Quarter: 2012Q4

REPORT INFORMATION
  Report Type: 
  Country: CN (occurrence: CN)
  Receive Date: 20120927
  Receipt Date: 20120927
  Transmission Date: 20130627
  Serious: Yes (Hospitalization)
  Sender: FDA-Public Use
  Company Number: CN-GLAXOSMITHKLINE-B0832704A

PATIENT
  Age: 89 Year
  Sex: Male
  Weight: 49 kg

DRUGS (1)
  1. LAMIVUDINE [Suspect]
     Indication: HEPATITIS B
     Dosage: .1G per day
     Route: 048
     Dates: start: 20090301, end: 20091010

REACTIONS (2)
  - Chronic obstructive pulmonary disease [Recovering/Resolving]
  - Anaemia [Recovering/Resolving]
